FAERS Safety Report 25797516 (Version 1)
Quarter: 2025Q3

REPORT INFORMATION
  Report Type: Report from Study
  Country: US (occurrence: US)
  Receive Date: 20250912
  Receipt Date: 20250912
  Transmission Date: 20251020
  Serious: Yes (Other)
  Sender: ABBVIE
  Company Number: US-ABBVIE-6450050

PATIENT
  Age: 74 Year
  Sex: Female

DRUGS (1)
  1. RINVOQ [Suspect]
     Active Substance: UPADACITINIB
     Indication: Rheumatoid arthritis
     Route: 048
     Dates: start: 20230918

REACTIONS (4)
  - Connective tissue disease-associated interstitial lung disease [Unknown]
  - Lupus pneumonitis [Unknown]
  - Lung disorder [Unknown]
  - Dental restoration failure [Recovering/Resolving]

NARRATIVE: CASE EVENT DATE: 20250801
